FAERS Safety Report 9696644 (Version 2)
Quarter: 2013Q4

REPORT INFORMATION
  Report Type: Spontaneous
  Country: US (occurrence: US)
  Receive Date: 20131119
  Receipt Date: 20131119
  Transmission Date: 20140711
  Serious: Yes (Death, Hospitalization, Other)
  Sender: FDA-Public Use
  Company Number: US-GILEAD-2013-0087007

PATIENT
  Sex: Female

DRUGS (3)
  1. LETAIRIS [Suspect]
     Indication: PULMONARY HYPERTENSION
     Dosage: 10 MG, QD
     Route: 048
     Dates: start: 20080912
  2. LETAIRIS [Suspect]
     Indication: RHEUMATOID ARTHRITIS
  3. ADCIRCA [Concomitant]

REACTIONS (3)
  - Pulmonary fibrosis [Fatal]
  - Pulmonary hypertension [Fatal]
  - Dyspnoea [Fatal]
